FAERS Safety Report 7285008-3 (Version None)
Quarter: 2011Q1

REPORT INFORMATION
  Report Type: 
  Country: None (occurrence: None)
  Receive Date: 20110204
  Receipt Date: 20110204
  Transmission Date: 20110831
  Serious: Yes (Hospitalization)
  Sender: FDA-Public Use
  Company Number: None

PATIENT
  Sex: Female
  Weight: 65 kg

DRUGS (2)
  1. IFOSFAMIDE [Suspect]
     Dosage: 7.68 G
  2. TAXOL [Suspect]
     Dosage: 220 MG

REACTIONS (3)
  - CONFUSIONAL STATE [None]
  - NEUTROPENIA [None]
  - DEEP VEIN THROMBOSIS [None]
